FAERS Safety Report 13668151 (Version 2)
Quarter: 2017Q2

REPORT INFORMATION
  Report Type: Spontaneous
  Country: US (occurrence: US)
  Receive Date: 20170620
  Receipt Date: 20170630
  Transmission Date: 20170830
  Serious: No
  Sender: FDA-Public Use
  Company Number: US-PFIZER INC-2017267057

PATIENT
  Age: 58 Year
  Sex: Male
  Weight: 147.4 kg

DRUGS (1)
  1. GABAPENTIN. [Suspect]
     Active Substance: GABAPENTIN
     Indication: PAIN
     Dosage: 900 MG, 3X/DAY(3 TABLETS , 3 TIMES A DAY)

REACTIONS (1)
  - Drug ineffective for unapproved indication [Unknown]
